FAERS Safety Report 10529779 (Version 1)
Quarter: 2014Q4

REPORT INFORMATION
  Report Type: Spontaneous
  Country: US (occurrence: None)
  Receive Date: 20141020
  Receipt Date: 20141020
  Transmission Date: 20150528
  Serious: No
  Sender: FDA-Public Use
  Company Number: None

PATIENT
  Age: 80 Year
  Sex: Female
  Weight: 49.44 kg

DRUGS (5)
  1. FLUCONAZOLE 100 MG GREENSTONE LLC [Suspect]
     Active Substance: FLUCONAZOLE
     Indication: VULVOVAGINAL MYCOTIC INFECTION
     Dosage: 3 TABS?1 TAB WED?1 TAB FRIDAY?1 TAB SUNDAY ?BY MOUTH
     Route: 048
     Dates: start: 20140924, end: 20140924
  2. DEPAKOTE [Concomitant]
     Active Substance: DIVALPROEX SODIUM
  3. ADVIL [Concomitant]
     Active Substance: IBUPROFEN
  4. CENTRUM MULTIPLE VIT [Concomitant]
  5. SYNTHROID [Concomitant]
     Active Substance: LEVOTHYROXINE SODIUM

REACTIONS (2)
  - Diarrhoea [None]
  - Abdominal pain [None]

NARRATIVE: CASE EVENT DATE: 20140924
